FAERS Safety Report 5429610-X (Version None)
Quarter: 2007Q3

REPORT INFORMATION
  Report Type: 
  Country: None (occurrence: None)
  Receive Date: 20070824
  Receipt Date: 20070814
  Transmission Date: 20080115
  Serious: Yes (Other)
  Sender: FDA-Public Use
  Company Number: 17230

PATIENT
  Age: 5 Year
  Sex: Female

DRUGS (10)
  1. PAMIDRONATE DISODIUM [Suspect]
     Indication: OSTEOMYELITIS
     Dosage: 0.5 MG/KG IV
     Route: 042
  2. PAMIDRONATE DISODIUM [Suspect]
     Indication: OSTEOMYELITIS
     Dosage: 1 MG/KG IV
     Route: 042
  3. IBUPROFEN [Concomitant]
  4. CEPHALEXIN [Concomitant]
  5. CLOXACILLIN SODIUM [Concomitant]
  6. AMOXICILLIN [Concomitant]
  7. CEFACLOR [Concomitant]
  8. CLINDAMYCIN HCL [Concomitant]
  9. INDOMETHACIN [Concomitant]
  10. CELECOXIB [Concomitant]

REACTIONS (5)
  - HYPOCALCAEMIA [None]
  - MUSCULOSKELETAL DISORDER [None]
  - NAUSEA [None]
  - PYREXIA [None]
  - RED BLOOD CELL SEDIMENTATION RATE INCREASED [None]
